FAERS Safety Report 8544930-8 (Version None)
Quarter: 2012Q3

REPORT INFORMATION
  Report Type: 
  Country: None (occurrence: None)
  Receive Date: 20120727
  Receipt Date: 20120719
  Transmission Date: 20120928
  Serious: Yes (Death, Hospitalization, Other)
  Sender: FDA-Public Use
  Company Number: US-009507513-2012SP017141

PATIENT

DRUGS (5)
  1. NUVARING [Suspect]
     Dosage: UNK
     Dates: start: 20090506, end: 20100428
  2. NORVASC [Concomitant]
     Dosage: UNK
     Dates: start: 19960101
  3. CATAPRES [Concomitant]
     Dosage: UNK
     Dates: start: 19960101
  4. COUMADIN [Suspect]
     Indication: PULMONARY EMBOLISM
     Dosage: UNK
     Dates: start: 20100428
  5. NUVARING [Suspect]
     Indication: CONTRACEPTION
     Dosage: UNK
     Dates: start: 20060525, end: 20060825

REACTIONS (16)
  - BLOOD CHOLESTEROL INCREASED [None]
  - ACUTE RESPIRATORY FAILURE [None]
  - SLEEP APNOEA SYNDROME [None]
  - HYPERTENSION [None]
  - DEPRESSION [None]
  - PULMONARY EMBOLISM [None]
  - HEADACHE [None]
  - COR PULMONALE [None]
  - CHEST PAIN [None]
  - SLEEP PARALYSIS [None]
  - OVARIAN CYST [None]
  - TRICUSPID VALVE INCOMPETENCE [None]
  - DYSPNOEA [None]
  - ANXIETY [None]
  - PNEUMONIA [None]
  - BORDERLINE PERSONALITY DISORDER [None]
